FAERS Safety Report 5129953-3 (Version None)
Quarter: 2006Q4

REPORT INFORMATION
  Report Type: 
  Country: None (occurrence: None)
  Receive Date: 20061013
  Receipt Date: 20060926
  Transmission Date: 20070319
  Serious: Yes (Hospitalization)
  Sender: FDA-Public Use
  Company Number: ENT 2006-0132

PATIENT
  Age: 66 Year
  Sex: Male

DRUGS (4)
  1. COMTAN [Suspect]
     Indication: PARKINSON'S DISEASE
     Dosage: 600 MG ORAL
     Route: 048
  2. PROLOPA [Concomitant]
  3. LOPIDIL [Concomitant]
  4. SELEGILINE HCL [Concomitant]

REACTIONS (4)
  - ARTHRALGIA [None]
  - DRUG DOSE OMISSION [None]
  - DRUG EFFECT DECREASED [None]
  - TREMOR [None]
